FAERS Safety Report 26203151 (Version 1)
Quarter: 2025Q4

REPORT INFORMATION
  Report Type: Spontaneous
  Country: US (occurrence: None)
  Receive Date: 20251223
  Receipt Date: 20251223
  Transmission Date: 20260117
  Serious: No
  Sender: FDA-CTU
  Company Number: None

PATIENT
  Sex: Male

DRUGS (1)
  1. VIJOICE [Suspect]
     Active Substance: ALPELISIB

REACTIONS (7)
  - Blood glucose increased [None]
  - Rosacea [None]
  - Rash [None]
  - Alopecia [None]
  - Abdominal discomfort [None]
  - Cough [None]
  - Gastrointestinal disorder [None]
